FAERS Safety Report 9520029 (Version 1)
Quarter: 2013Q1

REPORT INFORMATION
  Report Type: Spontaneous
  Country: US (occurrence: None)
  Receive Date: 20130305
  Receipt Date: 20130305
  Transmission Date: 20140127
  Serious: Yes (Other)
  Sender: FDA-Public Use
  Company Number: 163-21880-11122371

PATIENT
  Age: 76 Year
  Sex: Female
  Weight: 64.86 kg

DRUGS (6)
  1. REVLIMID (LENALIDOMIDE) (25 MILLIGRAM, CAPSULES) [Suspect]
     Indication: PLASMA CELL MYELOMA
     Route: 048
     Dates: start: 20110928
  2. ARANESP (DARBEPOETIN ALFA) [Concomitant]
  3. ZOMETA (ZOLEDRONIC ACID) [Concomitant]
  4. DEXAMETHASONE (DEXAMETHASONE) [Concomitant]
  5. MELPHALAN [Concomitant]
  6. VELCADE (BORTEZOMIB) [Concomitant]

REACTIONS (1)
  - Pancytopenia [None]
